FAERS Safety Report 18905688 (Version 1)
Quarter: 2021Q1

REPORT INFORMATION
  Report Type: Report from Study
  Country: IT (occurrence: IT)
  Receive Date: 20210217
  Receipt Date: 20210217
  Transmission Date: 20210420
  Serious: Yes (Death, Hospitalization, Other)
  Sender: FDA-Public Use
  Company Number: IT-INCYTE CORPORATION-2021IN001264

PATIENT

DRUGS (2)
  1. ACICLOVIR [Concomitant]
     Active Substance: ACYCLOVIR
     Indication: HERPES ZOSTER
     Dosage: 4 G, QD
     Route: 048
     Dates: start: 20210128
  2. JAKAVI [Suspect]
     Active Substance: RUXOLITINIB
     Indication: MYELOFIBROSIS
     Dosage: 5 MG, BID
     Route: 048
     Dates: start: 20180430, end: 20210129

REACTIONS (11)
  - Anaemia [Fatal]
  - Subcapsular splenic haematoma [Fatal]
  - Oxygen saturation decreased [Unknown]
  - Leukocytosis [Fatal]
  - Interstitial lung disease [Fatal]
  - Circulatory collapse [Fatal]
  - Hypovolaemic shock [Fatal]
  - Metabolic acidosis [Unknown]
  - Antithrombin III decreased [Unknown]
  - Hypotension [Unknown]
  - Acute kidney injury [Fatal]

NARRATIVE: CASE EVENT DATE: 20210202
